FAERS Safety Report 23438576 (Version 1)
Quarter: 2024Q1

REPORT INFORMATION
  Report Type: Spontaneous
  Country: US (occurrence: None)
  Receive Date: 20240124
  Receipt Date: 20240124
  Transmission Date: 20240409
  Serious: Yes (Other)
  Sender: FDA-Public Use
  Company Number: 2024A014950

PATIENT

DRUGS (4)
  1. FARXIGA [Suspect]
     Active Substance: DAPAGLIFLOZIN PROPANEDIOL
     Route: 048
  2. ENTRESTO [Suspect]
     Active Substance: SACUBITRIL\VALSARTAN
  3. EPLERENONE [Suspect]
     Active Substance: EPLERENONE
  4. NEBIVOLOL [Suspect]
     Active Substance: NEBIVOLOL

REACTIONS (2)
  - Myopericarditis [Unknown]
  - Chest pain [Unknown]
